FAERS Safety Report 8446777-X (Version None)
Quarter: 2012Q2

REPORT INFORMATION
  Report Type: 
  Country: None (occurrence: None)
  Receive Date: 20120619
  Receipt Date: 20120611
  Transmission Date: 20120825
  Serious: No
  Sender: FDA-Public Use
  Company Number: US-BIOGENIDEC-2012BI020802

PATIENT
  Age: 37 Year
  Sex: Female

DRUGS (1)
  1. TYSABRI [Suspect]
     Indication: MULTIPLE SCLEROSIS
     Route: 042
     Dates: start: 20120322

REACTIONS (6)
  - HYPOAESTHESIA [None]
  - PERONEAL NERVE PALSY [None]
  - SINUSITIS [None]
  - MUSCULAR WEAKNESS [None]
  - FATIGUE [None]
  - CLUMSINESS [None]
